FAERS Safety Report 13599974 (Version 1)
Quarter: 2017Q2

REPORT INFORMATION
  Report Type: Spontaneous
  Country: US (occurrence: US)
  Receive Date: 20170601
  Receipt Date: 20170601
  Transmission Date: 20170830
  Serious: Yes (Hospitalization)
  Sender: FDA-Public Use
  Company Number: US-ALEMBIC PHARMACUETICALS LIMITED-2017SCAL000446

PATIENT

DRUGS (2)
  1. LITHIUM CARBONATE. [Suspect]
     Active Substance: LITHIUM CARBONATE
     Indication: BIPOLAR DISORDER
     Dosage: UNK
     Route: 065
  2. LITHIUM CARBONATE. [Suspect]
     Active Substance: LITHIUM CARBONATE
     Dosage: DOSE DECREASED

REACTIONS (6)
  - Dysphonia [Recovering/Resolving]
  - Toxicity to various agents [Recovering/Resolving]
  - Fall [Recovering/Resolving]
  - Electroencephalogram abnormal [Recovering/Resolving]
  - Myoclonus [Recovered/Resolved]
  - Balance disorder [Recovering/Resolving]
